FAERS Safety Report 22200988 (Version 2)
Quarter: 2024Q1

REPORT INFORMATION
  Report Type: Spontaneous
  Country: JP (occurrence: JP)
  Receive Date: 20230412
  Receipt Date: 20240117
  Transmission Date: 20240409
  Serious: Yes (Hospitalization, Other)
  Sender: FDA-Public Use
  Company Number: JP-ASTELLAS-2023JP001603

PATIENT
  Age: 8 Decade
  Sex: Female

DRUGS (3)
  1. PADCEV [Suspect]
     Active Substance: ENFORTUMAB VEDOTIN-EJFV
     Indication: Ureteric cancer
     Dosage: UNK UNK, ONCE WEEKLY ADMINISTRATION FOR THREE CONSECUTIVE WEEKS AND INTERRUPTION FOR THE 4TH WEEK
     Route: 041
     Dates: start: 20230110
  2. PADCEV [Suspect]
     Active Substance: ENFORTUMAB VEDOTIN-EJFV
     Dosage: 0.5 MG/KG,  ONCE WEEKLY ADMINISTRATION FOR THREE CONSECUTIVE WEEKS AND INTERRUPTION FOR THE 4TH WEEK
     Route: 041
  3. PADCEV [Suspect]
     Active Substance: ENFORTUMAB VEDOTIN-EJFV
     Dosage: UNK UNK, EVERY 2 WEEKS
     Route: 041

REACTIONS (5)
  - Febrile neutropenia [Recovered/Resolved]
  - Myelosuppression [Not Recovered/Not Resolved]
  - Malaise [Recovered/Resolved]
  - Rash [Recovered/Resolved]
  - Decreased appetite [Recovered/Resolved]
